FAERS Safety Report 8909720 (Version 2)
Quarter: 2013Q2

REPORT INFORMATION
  Report Type: Spontaneous
  Country: US (occurrence: None)
  Receive Date: 20121109
  Receipt Date: 20130624
  Transmission Date: 20140414
  Serious: Yes (Other)
  Sender: FDA-Public Use
  Company Number: 1210-633

PATIENT
  Age: 77 Year
  Sex: Male

DRUGS (2)
  1. EYLEA [Suspect]
     Indication: AGE-RELATED MACULAR DEGENERATION
     Dates: start: 20120709, end: 20120911
  2. EYLEA [Suspect]
     Indication: CHOROIDAL NEOVASCULARISATION
     Dates: start: 20120709, end: 20120911

REACTIONS (1)
  - Cerebrovascular accident [None]
